FAERS Safety Report 5626493-X (Version None)
Quarter: 2008Q1

REPORT INFORMATION
  Report Type: 
  Country: None (occurrence: None)
  Receive Date: 20080211
  Receipt Date: 20080123
  Transmission Date: 20080703
  Serious: Yes (Death)
  Sender: FDA-Public Use
  Company Number: 2001003411-FJ

PATIENT
  Age: 46 Year
  Sex: Male

DRUGS (4)
  1. PROGRAF [Suspect]
     Indication: LIVER TRANSPLANT
     Dates: start: 20010501
  2. CYCLOPHOSPHAMIDE [Concomitant]
  3. GABEXATE MESILATE (GABEXATE MESILATE) [Concomitant]
  4. PROSTAGLANDIN I2 (EPOPROSTENOL) [Concomitant]

REACTIONS (11)
  - ALTERED STATE OF CONSCIOUSNESS [None]
  - BRAIN DEATH [None]
  - CEREBRAL HAEMORRHAGE [None]
  - COAGULOPATHY [None]
  - HAEMOLYTIC ANAEMIA [None]
  - HYPERBILIRUBINAEMIA [None]
  - INTRA-ABDOMINAL HAEMORRHAGE [None]
  - RENAL IMPAIRMENT [None]
  - RETROPERITONEAL HAEMATOMA [None]
  - THROMBOCYTOPENIA [None]
  - THROMBOTIC MICROANGIOPATHY [None]
